FAERS Safety Report 18918538 (Version 1)
Quarter: 2021Q1

REPORT INFORMATION
  Report Type: Other
  Country: US (occurrence: US)
  Receive Date: 20210220
  Receipt Date: 20210220
  Transmission Date: 20210420
  Serious: Yes (Other)
  Sender: FDA-Public Use
  Company Number: US-ROCHE-2772047

PATIENT
  Sex: Female

DRUGS (1)
  1. ACTEMRA [Suspect]
     Active Substance: TOCILIZUMAB
     Indication: RHEUMATOID ARTHRITIS
     Dosage: INFUSE 4MG/KG (313MG) INTRAVENOUSLY EVERY 28 DAYS?80MG VIAL  4MG/KG
     Route: 042

REACTIONS (1)
  - Thrombosis [Unknown]
